FAERS Safety Report 4626982-0 (Version None)
Quarter: 2005Q1

REPORT INFORMATION
  Report Type: 
  Country: None (occurrence: None)
  Receive Date: 20050331
  Receipt Date: 20050323
  Transmission Date: 20050727
  Serious: Yes (Hospitalization)
  Sender: FDA-Public Use
  Company Number: 2004117936

PATIENT
  Age: 74 Year
  Sex: Male
  Weight: 57 kg

DRUGS (11)
  1. AZULFIDINE [Suspect]
     Indication: RHEUMATOID ARTHRITIS
     Dosage: 1000 MG (500 MG, 1 IN 2 D), ORAL
     Route: 048
     Dates: start: 20040825, end: 20041004
  2. CEFAZOLIN SODIUM [Suspect]
     Indication: PROPHYLAXIS
     Dosage: 2 GRAM (2 GRAM, 1 IN 1 D), INTRAVENOUS
     Route: 042
     Dates: start: 20040922, end: 20040923
  3. CEFDITOREN PIVOXIL (CEFDITOREN PIVOXIL) [Suspect]
     Indication: ILL-DEFINED DISORDER
     Dosage: 300 GRAM (100 GRAM, 1 IN 3 D), ORAL
     Route: 048
     Dates: start: 20041002, end: 20041004
  4. CEFDITOREN PIVOXIL (CEFDITOREN PIVOXIL) [Suspect]
     Indication: POSTOPERATIVE CARE
     Dosage: 300 GRAM (100 GRAM, 1 IN 3 D), ORAL
     Route: 048
     Dates: start: 20041002, end: 20041004
  5. PIPERACILLIN SODIUM [Suspect]
     Indication: POSTOPERATIVE CARE
     Dosage: 2 GRAM (1 GRAM, 2 IN 1 D), INTRAVENOUS
     Route: 042
     Dates: start: 20041001, end: 20041001
  6. DICLOFENAC SODIUM [Concomitant]
  7. MAGNESIUM OXIDE (MAGNESIUM OXIDE) [Concomitant]
  8. PREDNISONE [Concomitant]
  9. ALENDRONATE SODIUM [Concomitant]
  10. SENNA LEAF (SENNA LEAF) [Concomitant]
  11. SODIUM GUALENATE (SODIUM GUALENATE) [Concomitant]

REACTIONS (10)
  - AGRANULOCYTOSIS [None]
  - ANAEMIA [None]
  - ARTHRALGIA [None]
  - ASTHENIA [None]
  - GASTRIC ULCER [None]
  - HYPOAESTHESIA [None]
  - PNEUMONIA KLEBSIELLA [None]
  - RASH [None]
  - SEPSIS [None]
  - THROMBOCYTOPENIA [None]
